FAERS Safety Report 18999419 (Version 4)
Quarter: 2021Q2

REPORT INFORMATION
  Report Type: Spontaneous
  Country: GB (occurrence: GB)
  Receive Date: 20210312
  Receipt Date: 20210409
  Transmission Date: 20210717
  Serious: Yes (Other)
  Sender: FDA-Public Use
  Company Number: GB-AUROBINDO-AUR-APL-2021-010201

PATIENT
  Age: 47 Year
  Sex: Female

DRUGS (1)
  1. PANTOPRAZOLE GASTRO?RESISTANT TABLET [Suspect]
     Active Substance: PANTOPRAZOLE SODIUM
     Indication: ILL-DEFINED DISORDER
     Dosage: 20 MILLIGRAM, 3 TIMES A DAY (THREE AT NIGHT)
     Route: 048

REACTIONS (4)
  - Product dispensing error [Unknown]
  - Anxiety [Unknown]
  - Medication error [Unknown]
  - Malaise [Unknown]
